FAERS Safety Report 5716464-7 (Version None)
Quarter: 2008Q2

REPORT INFORMATION
  Report Type: 
  Country: None (occurrence: None)
  Receive Date: 20080415
  Receipt Date: 20070817
  Transmission Date: 20081010
  Serious: Yes (Hospitalization)
  Sender: FDA-Public Use
  Company Number: 2007-03713

PATIENT
  Age: 66 Year
  Sex: Female
  Weight: 70.7 kg

DRUGS (11)
  1. FERRLECIT [Suspect]
     Indication: IRON DEFICIENCY ANAEMIA
     Dosage: 250 MG, IN 100 ML NS OVER 1 HR,INTRAVENOUS
     Route: 042
     Dates: start: 20070723, end: 20070723
  2. REGLAN [Concomitant]
  3. ZANTAC [Concomitant]
  4. METFORMIN HCL [Concomitant]
  5. GLIPIZIDE [Concomitant]
  6. LASIX [Concomitant]
  7. FERROUS SULFATE TAB [Concomitant]
  8. LOVASTATIN [Concomitant]
  9. GABAPENTIN [Concomitant]
  10. NECON UNKNOWN (WATSON LABORATORIES)(ETHINYL ESTRADIOL, NORETHINDRONE) [Concomitant]
  11. METOPROLOL TARTRATE [Concomitant]

REACTIONS (3)
  - FAECAL INCONTINENCE [None]
  - GRAND MAL CONVULSION [None]
  - MYOCARDIAL INFARCTION [None]
